FAERS Safety Report 9001856 (Version 3)
Quarter: 2013Q2

REPORT INFORMATION
  Report Type: Spontaneous
  Country: US (occurrence: US)
  Receive Date: 20130108
  Receipt Date: 20130416
  Transmission Date: 20140414
  Serious: No
  Sender: FDA-Public Use
  Company Number: US-009507513-1212USA010992

PATIENT
  Age: 33 Year
  Sex: Male
  Weight: 83.9 kg

DRUGS (6)
  1. VICTRELIS [Suspect]
     Indication: HEPATITIS C
     Dosage: 800 MG, TID (EVERY 7-9 HOURS)
     Route: 048
  2. REBETOL [Suspect]
     Indication: HEPATITIS C
     Dosage: UNK
     Route: 048
  3. PEGASYS [Suspect]
     Indication: HEPATITIS C
     Dosage: UNK
     Route: 058
  4. IBUPROFEN [Concomitant]
     Dosage: UNK
     Route: 048
  5. ZOLPIDEM TARTRATE [Concomitant]
     Route: 048
  6. TYLENOL 8 HOUR EXTENDED RELEASE [Concomitant]
     Route: 048

REACTIONS (11)
  - Pruritus [Unknown]
  - Dysgeusia [Unknown]
  - Influenza like illness [Unknown]
  - Dry skin [Unknown]
  - Cough [Unknown]
  - Nausea [Unknown]
  - Arthralgia [Unknown]
  - Fatigue [Unknown]
  - Muscle spasms [Unknown]
  - Insomnia [Unknown]
  - Weight decreased [Unknown]
